FAERS Safety Report 6286471-7 (Version None)
Quarter: 2009Q3

REPORT INFORMATION
  Report Type: 
  Country: None (occurrence: None)
  Receive Date: 20090728
  Receipt Date: 20090720
  Transmission Date: 20100115
  Serious: Yes (Death)
  Sender: FDA-Public Use
  Company Number: B0585108A

PATIENT
  Sex: Male

DRUGS (1)
  1. HYCAMTIN [Suspect]
     Indication: LUNG CANCER METASTATIC
     Dosage: 1MG PER DAY
     Route: 048
     Dates: start: 20090629, end: 20090703

REACTIONS (2)
  - SEPSIS [None]
  - SEPTIC SHOCK [None]
